FAERS Safety Report 5587734-0 (Version None)
Quarter: 2008Q1

REPORT INFORMATION
  Report Type: 
  Country: None (occurrence: None)
  Receive Date: 20080108
  Receipt Date: 20071226
  Transmission Date: 20080703
  Serious: Yes (Hospitalization, Other)
  Sender: FDA-Public Use
  Company Number: 2007SP024604

PATIENT
  Age: 54 Year
  Sex: Male
  Weight: 87.9978 kg

DRUGS (3)
  1. PEG-INTRON [Suspect]
     Indication: HEPATITIS C
     Dosage: 150 MCG;QW;SC
     Route: 058
     Dates: start: 20071005, end: 20071203
  2. TARIBAVIRIN [Suspect]
     Indication: HEPATITIS C
     Dosage: 2800 MG; QD, 2200 MG; QD
     Dates: start: 20071005, end: 20071127
  3. TARIBAVIRIN [Suspect]
     Indication: HEPATITIS C
     Dosage: 2800 MG; QD, 2200 MG; QD
     Dates: start: 20071128, end: 20071203

REACTIONS (15)
  - ACUTE RESPIRATORY DISTRESS SYNDROME [None]
  - AMNESIA [None]
  - APPENDICECTOMY [None]
  - CIRCULATORY COLLAPSE [None]
  - CONVULSION [None]
  - DEHYDRATION [None]
  - DIARRHOEA [None]
  - FAECALITH [None]
  - HYPOTENSION [None]
  - LOBAR PNEUMONIA [None]
  - METABOLIC ENCEPHALOPATHY [None]
  - OESOPHAGEAL VARICES HAEMORRHAGE [None]
  - PORTAL HYPERTENSIVE GASTROPATHY [None]
  - PULMONARY SEPSIS [None]
  - TREMOR [None]
